FAERS Safety Report 6130119-9 (Version None)
Quarter: 2009Q1

REPORT INFORMATION
  Report Type: 
  Country: None (occurrence: None)
  Receive Date: 20090324
  Receipt Date: 20090313
  Transmission Date: 20090719
  Serious: Yes (Hospitalization)
  Sender: FDA-Public Use
  Company Number: PHEH2009US00818

PATIENT
  Sex: Female
  Weight: 37.4 kg

DRUGS (11)
  1. PAMIDRONATE DISODIUM [Suspect]
     Indication: OSTEOPOROSIS
     Dosage: UNK
     Dates: start: 20080804
  2. ZANTAC [Concomitant]
     Dosage: 300 MG QD OR BID PRN
     Route: 048
  3. ZYPREXA [Concomitant]
     Dosage: 2.5 MG, QHS
     Route: 048
  4. LOPRESSOR [Concomitant]
     Dosage: 25 MG, QD
     Route: 048
  5. LOPRESSOR [Concomitant]
     Dosage: 50 MG, QHS
  6. REMERON [Concomitant]
     Dosage: 15 MG, QHS
     Route: 048
  7. CLARITIN [Concomitant]
     Dosage: 10 MG, QD
     Route: 048
  8. TYLENOL [Concomitant]
     Indication: PAIN
     Dosage: 650 MG PO Q4HRS PRN
  9. PRILOSEC [Concomitant]
     Dosage: 40 MG, BID
     Route: 048
  10. ATIVAN [Concomitant]
     Indication: ANXIETY
     Dosage: 1 MG PO TID PRN
  11. ASPIRIN [Concomitant]
     Dosage: 81 MG, QD
     Route: 048

REACTIONS (12)
  - ASTHENIA [None]
  - ATAXIA [None]
  - BALANCE DISORDER [None]
  - BLOOD PRESSURE INCREASED [None]
  - CONSTIPATION [None]
  - DYSURIA [None]
  - FALL [None]
  - GAIT DISTURBANCE [None]
  - MYALGIA [None]
  - NAUSEA [None]
  - PAIN [None]
  - SPINAL COLUMN STENOSIS [None]
